FAERS Safety Report 5332629-0 (Version None)
Quarter: 2007Q2

REPORT INFORMATION
  Report Type: 
  Country: None (occurrence: None)
  Receive Date: 20070523
  Receipt Date: 20070508
  Transmission Date: 20071010
  Serious: Yes (Other)
  Sender: FDA-Public Use
  Company Number: AU-PFIZER INC-2007037779

PATIENT
  Sex: Female

DRUGS (6)
  1. XALATAN [Suspect]
     Route: 047
  2. NAPHCON-A [Concomitant]
  3. GABAPENTIN [Concomitant]
  4. PANTOPRAZOLE SODIUM [Concomitant]
  5. TRITACE [Concomitant]
  6. FELODUR [Concomitant]

REACTIONS (4)
  - EYE PAIN [None]
  - EYE PRURITUS [None]
  - OCULAR HYPERAEMIA [None]
  - SINUS DISORDER [None]
